FAERS Safety Report 4409425-1 (Version None)
Quarter: 2004Q3

REPORT INFORMATION
  Report Type: 
  Country: None (occurrence: None)
  Receive Date: 20040727
  Receipt Date: 20040727
  Transmission Date: 20050211
  Serious: Yes (Life-Threatening, Hospitalization)
  Sender: FDA-Public Use
  Company Number: None

PATIENT
  Sex: Male
  Weight: 95.2554 kg

DRUGS (1)
  1. DEPO-MEDROL [Suspect]
     Indication: SPINAL COLUMN STENOSIS
     Dosage: 80 MG

REACTIONS (1)
  - MENINGITIS CHEMICAL [None]
